FAERS Safety Report 7512618-8 (Version None)
Quarter: 2011Q2

REPORT INFORMATION
  Report Type: 
  Country: None (occurrence: None)
  Receive Date: 20110531
  Receipt Date: 20110524
  Transmission Date: 20111010
  Serious: Yes (Other)
  Sender: FDA-Public Use
  Company Number: JP-ROCHE-779588

PATIENT
  Sex: Female

DRUGS (2)
  1. MIDAZOLAM HCL [Suspect]
     Route: 042
     Dates: start: 20110524, end: 20110524
  2. FLUMAZENIL [Suspect]
     Route: 042
     Dates: start: 20110524, end: 20110524

REACTIONS (2)
  - RESPIRATORY DEPRESSION [None]
  - TACHYCARDIA [None]
